FAERS Safety Report 23206616 (Version 2)
Quarter: 2023Q4

REPORT INFORMATION
  Report Type: Spontaneous
  Country: IL (occurrence: IL)
  Receive Date: 20231120
  Receipt Date: 20231124
  Transmission Date: 20240109
  Serious: Yes (Other)
  Sender: FDA-Public Use
  Company Number: IL-BAYER-2023A164102

PATIENT
  Age: 79 Year
  Sex: Female

DRUGS (2)
  1. VITRAKVI [Suspect]
     Active Substance: LAROTRECTINIB
     Indication: Neuroendocrine tumour
     Dosage: 75 MG, BID
     Dates: start: 202301
  2. VITRAKVI [Suspect]
     Active Substance: LAROTRECTINIB
     Indication: Neuroendocrine tumour
     Dosage: 50 MG, BID

REACTIONS (1)
  - Neuroendocrine tumour [None]
